FAERS Safety Report 8661822 (Version 2)
Quarter: 2014Q1

REPORT INFORMATION
  Report Type: Spontaneous
  Country: US (occurrence: US)
  Receive Date: 20120712
  Receipt Date: 20140204
  Transmission Date: 20141002
  Serious: Yes (Hospitalization, Other)
  Sender: FDA-Public Use
  Company Number: US-JNJFOC-20120701861

PATIENT
  Age: 64 Year
  Sex: Male
  Weight: 92.99 kg

DRUGS (9)
  1. DURAGESIC [Suspect]
     Indication: NEURALGIA
     Route: 062
     Dates: start: 2008
  2. DURAGESIC [Suspect]
     Indication: NEURALGIA
     Route: 062
  3. SINGULAIR [Concomitant]
     Indication: LUNG DISORDER
     Route: 048
  4. OXYGEN [Concomitant]
     Indication: LUNG DISORDER
     Route: 065
  5. CYCLOBENZAPRINE [Concomitant]
     Route: 048
  6. ATENOLOL [Concomitant]
     Indication: BLOOD CHOLESTEROL
     Route: 048
  7. LIPITOR [Concomitant]
     Indication: CARDIAC DISORDER
     Route: 048
  8. LASIX [Concomitant]
     Indication: FLUID RETENTION
     Route: 048
  9. ALPRAZOLAM [Concomitant]
     Indication: ANXIETY
     Route: 048

REACTIONS (7)
  - Coronary artery occlusion [Recovered/Resolved]
  - Diabetes mellitus [Not Recovered/Not Resolved]
  - Immune system disorder [Not Recovered/Not Resolved]
  - Constipation [Not Recovered/Not Resolved]
  - Adverse drug reaction [Unknown]
  - Pain [Not Recovered/Not Resolved]
  - Product quality issue [Unknown]
